FAERS Safety Report 20805591 (Version 1)
Quarter: 2022Q2

REPORT INFORMATION
  Report Type: Spontaneous
  Country: US (occurrence: US)
  Receive Date: 20220510
  Receipt Date: 20220510
  Transmission Date: 20220721
  Serious: No
  Sender: FDA-Public Use
  Company Number: US-JNJFOC-20220511197

PATIENT
  Age: 61 Year
  Sex: Female

DRUGS (2)
  1. SIMPONI ARIA [Suspect]
     Active Substance: GOLIMUMAB
     Indication: Psoriatic arthropathy
     Route: 042
     Dates: start: 202203, end: 20220505
  2. SIMPONI ARIA [Suspect]
     Active Substance: GOLIMUMAB
     Indication: Psoriasis

REACTIONS (1)
  - Dermatitis allergic [Unknown]
